FAERS Safety Report 8251033-9 (Version None)
Quarter: 2012Q2

REPORT INFORMATION
  Report Type: 
  Country: None (occurrence: None)
  Receive Date: 20120402
  Receipt Date: 20120326
  Transmission Date: 20120825
  Serious: Yes (Life-Threatening)
  Sender: FDA-Public Use
  Company Number: JP-BAYER-2012-027739

PATIENT
  Age: 1 Year
  Sex: Male

DRUGS (3)
  1. ASPIRIN [Suspect]
     Indication: KAWASAKI'S DISEASE
     Dosage: UNK
     Route: 048
  2. ACETAMINOPHEN [Suspect]
     Indication: PYREXIA
     Dosage: UNK
  3. NORMAL HUMAN IMMUNOGLOBULIN [Concomitant]
     Indication: KAWASAKI'S DISEASE
     Dosage: UNK
     Route: 042

REACTIONS (5)
  - ERYTHEMA MULTIFORME [None]
  - EXCORIATION [None]
  - STEVENS-JOHNSON SYNDROME [None]
  - ENANTHEMA [None]
  - TOXIC EPIDERMAL NECROLYSIS [None]
